FAERS Safety Report 11473814 (Version 1)
Quarter: 2015Q3

REPORT INFORMATION
  Report Type: Spontaneous
  Country: US (occurrence: None)
  Receive Date: 20150908
  Receipt Date: 20150908
  Transmission Date: 20151125
  Serious: No
  Sender: FDA-Public Use
  Company Number: None

PATIENT
  Age: 54 Year
  Sex: Female
  Weight: 68.04 kg

DRUGS (26)
  1. RIBAVIRIN ZYDUS PHARMACEUTICAL [Suspect]
     Active Substance: RIBAVIRIN
     Dosage: 200 MG, 5 DAILY
     Route: 048
  2. MAGDELAY [Concomitant]
  3. OMEPRAZOLE. [Concomitant]
     Active Substance: OMEPRAZOLE
  4. HARVONI [Suspect]
     Active Substance: LEDIPASVIR\SOFOSBUVIR
     Indication: HEPATITIS C
     Dosage: 90/400 MG
     Route: 048
     Dates: start: 20150515, end: 20150805
  5. FAMOTIDINE (PEPCID) [Concomitant]
  6. ALBUTEROL SULFATE. [Concomitant]
     Active Substance: ALBUTEROL SULFATE
  7. ARIPIPRAZOL (ABILIFY) [Concomitant]
  8. LACTULOSE. [Concomitant]
     Active Substance: LACTULOSE
  9. METFORMIN [Concomitant]
     Active Substance: METFORMIN HYDROCHLORIDE
  10. HYDROMORPHONE [Concomitant]
     Active Substance: HYDROMORPHONE
  11. SPIRONOLACTONE. [Concomitant]
     Active Substance: SPIRONOLACTONE
  12. XIFAXEN (RIFAXIMIN) [Concomitant]
  13. ACYCLOVIR. [Concomitant]
     Active Substance: ACYCLOVIR
  14. FAMICLOVIR [Concomitant]
  15. VENLAFAXINE HCL [Concomitant]
     Active Substance: VENLAFAXINE HYDROCHLORIDE
  16. ADDERALL [Concomitant]
     Active Substance: AMPHETAMINE ASPARTATE\AMPHETAMINE SULFATE\DEXTROAMPHETAMINE SACCHARATE\DEXTROAMPHETAMINE SULFATE
  17. LEVOTHYROXINE. [Concomitant]
     Active Substance: LEVOTHYROXINE
  18. ASCORBIC ACID. [Concomitant]
     Active Substance: ASCORBIC ACID
  19. CALCIUM AND VIT D [Concomitant]
     Active Substance: CALCIUM\VITAMIN D
  20. LASIX [Concomitant]
     Active Substance: FUROSEMIDE
  21. LUNESTA [Concomitant]
     Active Substance: ESZOPICLONE
  22. WELLBUTRIN [Concomitant]
     Active Substance: BUPROPION HYDROCHLORIDE
  23. CRANBERRY. [Concomitant]
     Active Substance: CRANBERRY
  24. NADOLOL. [Concomitant]
     Active Substance: NADOLOL
  25. POTASSIUM CHLORIDE. [Concomitant]
     Active Substance: POTASSIUM CHLORIDE
  26. VIT B INJECTION [Concomitant]

REACTIONS (17)
  - Headache [None]
  - Neck pain [None]
  - Staphylococcal infection [None]
  - Swelling [None]
  - Nausea [None]
  - Ear infection [None]
  - Decreased appetite [None]
  - Depression [None]
  - Fatigue [None]
  - Muscle spasms [None]
  - Pain [None]
  - Vocal cord disorder [None]
  - Vomiting [None]
  - Diarrhoea [None]
  - Gastrooesophageal reflux disease [None]
  - Pruritus [None]
  - Sinusitis [None]

NARRATIVE: CASE EVENT DATE: 20150515
